FAERS Safety Report 6206561-4 (Version None)
Quarter: 2009Q2

REPORT INFORMATION
  Report Type: 
  Country: None (occurrence: None)
  Receive Date: 20090526
  Receipt Date: 20090514
  Transmission Date: 20091009
  Serious: Yes (Hospitalization)
  Sender: FDA-Public Use
  Company Number: 2009AL003279

PATIENT
  Sex: Male

DRUGS (1)
  1. DIGOXIN [Suspect]
     Indication: MYOCARDIAL INFARCTION
     Dosage: PO
     Route: 048
     Dates: start: 19950501

REACTIONS (6)
  - ANXIETY [None]
  - ASTHENIA [None]
  - CATHETERISATION CARDIAC [None]
  - HYPERSOMNIA [None]
  - HYPOTENSION [None]
  - LETHARGY [None]
